FAERS Safety Report 4450453-8 (Version None)
Quarter: 2004Q3

REPORT INFORMATION
  Report Type: 
  Country: None (occurrence: None)
  Receive Date: 20040914
  Receipt Date: 20040824
  Transmission Date: 20050211
  Serious: Yes (Hospitalization, Other)
  Sender: FDA-Public Use
  Company Number: 2004-BP-07286AU

PATIENT
  Age: 84 Year
  Sex: Male

DRUGS (8)
  1. PERSANTIN [Suspect]
     Indication: CEREBROVASCULAR DISORDER
     Dosage: 400 MG (200 MG,400MG DAILY), PO
     Route: 048
  2. PLAVIX [Concomitant]
  3. RANITIDINE [Concomitant]
  4. ALLOPURINOL [Concomitant]
  5. SIMVASTATIN [Concomitant]
  6. GLYCERYL TRINITRATE (GLYCERYL TRINITRATE) (TTS) [Concomitant]
  7. ATENOLOL [Concomitant]
  8. CYPROTERONE (CYPROTERONE) [Concomitant]

REACTIONS (3)
  - DRUG INTERACTION [None]
  - HAEMATURIA [None]
  - THROMBOSIS [None]
